FAERS Safety Report 7418577-0 (Version None)
Quarter: 2011Q2

REPORT INFORMATION
  Report Type: 
  Country: None (occurrence: None)
  Receive Date: 20110415
  Receipt Date: 20110405
  Transmission Date: 20111010
  Serious: Yes (Hospitalization)
  Sender: FDA-Public Use
  Company Number: PHHY2011US02841

PATIENT
  Sex: Female
  Weight: 52.608 kg

DRUGS (1)
  1. RECLAST [Suspect]
     Indication: OSTEOPOROSIS
     Dosage: 5 MG, PER YEAR
     Route: 042
     Dates: start: 20101228, end: 20101228

REACTIONS (4)
  - PARALYSIS [None]
  - HEAD DISCOMFORT [None]
  - BLOOD PRESSURE INCREASED [None]
  - MUSCULAR WEAKNESS [None]
